FAERS Safety Report 5659239-X (Version None)
Quarter: 2008Q1

REPORT INFORMATION
  Report Type: 
  Country: None (occurrence: None)
  Receive Date: 20080311
  Receipt Date: 20070817
  Transmission Date: 20080703
  Serious: Yes (Other)
  Sender: FDA-Public Use
  Company Number: US-BAYER-200712038BCC

PATIENT
  Age: 68 Year
  Sex: Female
  Weight: 68 kg

DRUGS (8)
  1. ALEVE [Suspect]
     Indication: DRUG USE FOR UNKNOWN INDICATION
     Dosage: TOTAL DAILY DOSE: 220 MG  UNIT DOSE: 220 MG
     Route: 048
     Dates: start: 20070401
  2. HYDROCHLOROTHIAZIDE [Concomitant]
  3. BENICAR [Concomitant]
  4. ESTRATEST [Concomitant]
  5. EQUATE ASPIRIN [Concomitant]
  6. ATENOLOL [Concomitant]
  7. VYTORIN [Concomitant]
  8. HORMONE REPLACEMENT THERAPY [Concomitant]

REACTIONS (1)
  - HYPERTENSION [None]
